FAERS Safety Report 6027810-1 (Version None)
Quarter: 2009Q1

REPORT INFORMATION
  Report Type: 
  Country: None (occurrence: None)
  Receive Date: 20090105
  Receipt Date: 20081230
  Transmission Date: 20090719
  Serious: Yes (Life-Threatening)
  Sender: FDA-Public Use
  Company Number: ES-B.I. PHARMACEUTICALS,INC./RIDGEFIELD-2008-ES-00696ES

PATIENT
  Age: 65 Year
  Sex: Male

DRUGS (2)
  1. ATROVENT [Suspect]
     Route: 042
     Dates: start: 20080101
  2. VENTOLIN [Suspect]
     Route: 042
     Dates: start: 20080101

REACTIONS (2)
  - INCORRECT ROUTE OF DRUG ADMINISTRATION [None]
  - VENTRICULAR TACHYCARDIA [None]
